FAERS Safety Report 5080538-7 (Version None)
Quarter: 2006Q3

REPORT INFORMATION
  Report Type: 
  Country: None (occurrence: None)
  Receive Date: 20060807
  Receipt Date: 20060724
  Transmission Date: 20061208
  Serious: Yes (Hospitalization, Other)
  Sender: FDA-Public Use
  Company Number: 2006BH011832

PATIENT
  Age: 20 Month
  Sex: Female
  Weight: 11.23 kg

DRUGS (4)
  1. IVEEGAM [Suspect]
     Indication: KAWASAKI'S DISEASE
     Dosage: IV
     Route: 042
     Dates: start: 20060301, end: 20060302
  2. IVEEGAM [Suspect]
     Indication: KAWASAKI'S DISEASE
     Dosage: IV
     Route: 042
     Dates: start: 20060305, end: 20060306
  3. REMICADE [Concomitant]
  4. ASPIRIN [Concomitant]

REACTIONS (2)
  - DRUG INEFFECTIVE [None]
  - PYREXIA [None]
